FAERS Safety Report 7232462-9 (Version None)
Quarter: 2011Q1

REPORT INFORMATION
  Report Type: 
  Country: None (occurrence: None)
  Receive Date: 20110119
  Receipt Date: 20110105
  Transmission Date: 20110831
  Serious: Yes (Death, Hospitalization, Other)
  Sender: FDA-Public Use
  Company Number: DE-RANBAXY-2011RR-41038

PATIENT
  Age: 58 Year

DRUGS (8)
  1. MEROPENEM [Suspect]
     Indication: ACINETOBACTER INFECTION
  2. CIPROFLOXACIN [Suspect]
     Indication: ACINETOBACTER INFECTION
  3. IMIPENEM [Suspect]
     Indication: ACINETOBACTER INFECTION
  4. VANCOMYCIN [Suspect]
     Indication: STAPHYLOCOCCAL BACTERAEMIA
  5. TOBRAMYCINE [Suspect]
     Indication: ACINETOBACTER INFECTION
  6. COTRIM [Suspect]
     Indication: ACINETOBACTER INFECTION
  7. PIPERACILLIN AND TAZOBACTAM [Suspect]
     Indication: ACINETOBACTER INFECTION
  8. COLISTIN [Concomitant]
     Indication: ACINETOBACTER INFECTION
     Route: 042

REACTIONS (2)
  - PATHOGEN RESISTANCE [None]
  - DRUG INEFFECTIVE [None]
